FAERS Safety Report 6619925-1 (Version None)
Quarter: 2010Q1

REPORT INFORMATION
  Report Type: 
  Country: None (occurrence: None)
  Receive Date: 20100304
  Receipt Date: 20100217
  Transmission Date: 20100710
  Serious: Yes (Other)
  Sender: FDA-Public Use
  Company Number: AMAG201000115

PATIENT
  Age: 51 Year
  Sex: Female
  Weight: 156.5 kg

DRUGS (23)
  1. FERAHEME [Suspect]
     Indication: IRON DEFICIENCY ANAEMIA
     Dosage: 510 MG, SINGLE, INTRAVENOUS; 5 ML, 150 MG, INTRAVENOUS
     Route: 042
     Dates: start: 20100203, end: 20100203
  2. FERAHEME [Suspect]
     Indication: IRON DEFICIENCY ANAEMIA
     Dosage: 510 MG, SINGLE, INTRAVENOUS; 5 ML, 150 MG, INTRAVENOUS
     Route: 042
     Dates: start: 20100211, end: 20100211
  3. TORSEMIDE [Concomitant]
  4. CARDIZEM [Concomitant]
  5. COREG [Concomitant]
  6. CARDURA [Concomitant]
  7. TRICOR [Concomitant]
  8. COUMADIN [Concomitant]
  9. PROCRIT [Concomitant]
  10. HUMALOG [Concomitant]
  11. LANTUS [Concomitant]
  12. GLYBURIDE [Concomitant]
  13. BYETTA [Concomitant]
  14. REGLAN [Concomitant]
  15. PROVIGIL [Concomitant]
  16. CYMBALTA [Concomitant]
  17. LYRICA [Concomitant]
  18. LEXAPRO [Concomitant]
  19. METHADONE HCL [Concomitant]
  20. HYDROCODONE BITARTRATE [Concomitant]
  21. MULTIVITAMIN [Concomitant]
  22. LOVAZA [Concomitant]
  23. VITAMIN D [Concomitant]

REACTIONS (7)
  - APNOEA [None]
  - ERUCTATION [None]
  - FEELING ABNORMAL [None]
  - HYPOTENSION [None]
  - LOSS OF CONSCIOUSNESS [None]
  - SYNCOPE [None]
  - UNRESPONSIVE TO STIMULI [None]
